FAERS Safety Report 8427756-5 (Version None)
Quarter: 2012Q2

REPORT INFORMATION
  Report Type: 
  Country: None (occurrence: None)
  Receive Date: 20120611
  Receipt Date: 20120531
  Transmission Date: 20120825
  Serious: No
  Sender: FDA-Public Use
  Company Number: US-B.I. PHARMACEUTICALS,INC./RIDGEFIELD-2012-BP-09352BP

PATIENT
  Sex: Male

DRUGS (2)
  1. VENTOLIN [Suspect]
     Indication: ASTHMA
     Route: 055
     Dates: start: 20110801
  2. SPIRIVA [Suspect]
     Indication: CHRONIC OBSTRUCTIVE PULMONARY DISEASE
     Dosage: 18 MCG
     Route: 055
     Dates: start: 20110801

REACTIONS (1)
  - DYSPNOEA [None]
